FAERS Safety Report 18701196 (Version 1)
Quarter: 2021Q1

REPORT INFORMATION
  Report Type: Spontaneous
  Country: US (occurrence: US)
  Receive Date: 20210104
  Receipt Date: 20210104
  Transmission Date: 20210419
  Serious: Yes (Hospitalization)
  Sender: FDA-Public Use
  Company Number: None

PATIENT
  Age: 57 Year
  Sex: Male

DRUGS (1)
  1. INLYTA [Suspect]
     Active Substance: AXITINIB
     Dosage: ?          OTHER FREQUENCY:Q12HR ;?
     Route: 048

REACTIONS (2)
  - Surgery [None]
  - Therapy interrupted [None]

NARRATIVE: CASE EVENT DATE: 20201201
